FAERS Safety Report 7569749-6 (Version None)
Quarter: 2011Q2

REPORT INFORMATION
  Report Type: 
  Country: None (occurrence: None)
  Receive Date: 20110620
  Receipt Date: 20110608
  Transmission Date: 20111010
  Serious: Yes (Hospitalization)
  Sender: FDA-Public Use
  Company Number: JPI-P-014153

PATIENT
  Age: 23 Year
  Sex: Female
  Weight: 56.6996 kg

DRUGS (11)
  1. XYREM [Suspect]
     Indication: NARCOLEPSY
     Dosage: SEE IMAGE
     Route: 048
     Dates: start: 20060324, end: 20060101
  2. XYREM [Suspect]
     Indication: NARCOLEPSY
     Dosage: SEE IMAGE
     Route: 048
     Dates: start: 20110101
  3. XYREM [Suspect]
     Indication: NARCOLEPSY
     Dosage: SEE IMAGE
     Route: 048
     Dates: start: 20060101, end: 20060101
  4. XYREM [Suspect]
     Indication: NARCOLEPSY
     Dosage: SEE IMAGE
     Route: 048
     Dates: start: 20060711
  5. XYREM [Suspect]
     Indication: NARCOLEPSY
     Dosage: SEE IMAGE
     Route: 048
     Dates: start: 20110101
  6. IBUPROFEN [Concomitant]
  7. TOPIRAMATE [Suspect]
     Indication: MIGRAINE
     Dosage: SEE IMAGE
     Dates: start: 20110101, end: 20110101
  8. TOPIRAMATE [Suspect]
     Indication: MIGRAINE
     Dosage: SEE IMAGE
     Dates: start: 20110101, end: 20110101
  9. TOPIRAMATE [Suspect]
     Indication: MIGRAINE
     Dosage: SEE IMAGE
     Dates: start: 20101101
  10. ALMOTRIPTAN [Concomitant]
  11. NAPROXEN [Concomitant]

REACTIONS (14)
  - GAIT DISTURBANCE [None]
  - EYE MOVEMENT DISORDER [None]
  - SOMNAMBULISM [None]
  - TREMOR [None]
  - GASTROENTERITIS VIRAL [None]
  - REPETITIVE SPEECH [None]
  - ABASIA [None]
  - INCOHERENT [None]
  - FALL [None]
  - CONTUSION [None]
  - HEAD INJURY [None]
  - HEART RATE INCREASED [None]
  - COMMUNICATION DISORDER [None]
  - LETHARGY [None]
